FAERS Safety Report 12280403 (Version 1)
Quarter: 2016Q2

REPORT INFORMATION
  Report Type: Spontaneous
  Country: US (occurrence: US)
  Receive Date: 20160419
  Receipt Date: 20160419
  Transmission Date: 20160815
  Serious: Yes (Hospitalization)
  Sender: FDA-Public Use
  Company Number: US-BEH-2016061283

PATIENT
  Sex: Male
  Weight: 91 kg

DRUGS (21)
  1. DIPHENHYDRAMINE. [Concomitant]
     Active Substance: DIPHENHYDRAMINE
  2. BACLOFEN. [Concomitant]
     Active Substance: BACLOFEN
  3. THEO-24 [Concomitant]
     Active Substance: THEOPHYLLINE ANHYDROUS
  4. AMLODIPINE [Concomitant]
     Active Substance: AMLODIPINE BESYLATE
  5. CEPHALEXIN. [Concomitant]
     Active Substance: CEPHALEXIN
  6. ACETAMINOPHEN. [Concomitant]
     Active Substance: ACETAMINOPHEN
  7. HYZAAR [Concomitant]
     Active Substance: HYDROCHLOROTHIAZIDE\LOSARTAN POTASSIUM
  8. AMBIEN [Concomitant]
     Active Substance: ZOLPIDEM TARTRATE
  9. ALBUTEROL. [Concomitant]
     Active Substance: ALBUTEROL
  10. HIZENTRA [Suspect]
     Active Substance: HUMAN IMMUNOGLOBULIN G
     Route: 058
     Dates: start: 20160307
  11. HIZENTRA [Suspect]
     Active Substance: HUMAN IMMUNOGLOBULIN G
     Indication: HYPOGAMMAGLOBULINAEMIA
     Dates: start: 20160307
  12. SINGULAIR [Concomitant]
     Active Substance: MONTELUKAST SODIUM
  13. IPRATROPIUM [Concomitant]
     Active Substance: IPRATROPIUM
  14. PREDNISONE. [Concomitant]
     Active Substance: PREDNISONE
  15. VITAMIN D3 [Concomitant]
     Active Substance: CHOLECALCIFEROL
  16. LMX [Concomitant]
     Active Substance: LIDOCAINE
  17. SPIRIVA [Concomitant]
     Active Substance: TIOTROPIUM BROMIDE MONOHYDRATE
  18. DULERA [Concomitant]
     Active Substance: FORMOTEROL FUMARATE DIHYDRATE\MOMETASONE FUROATE
  19. EPIPEN [Concomitant]
     Active Substance: EPINEPHRINE
  20. NORVASC [Concomitant]
     Active Substance: AMLODIPINE BESYLATE
  21. ZANTAC [Concomitant]
     Active Substance: RANITIDINE HYDROCHLORIDE

REACTIONS (1)
  - Hospitalisation [Unknown]
